FAERS Safety Report 11090077 (Version 1)
Quarter: 2015Q2

REPORT INFORMATION
  Report Type: Spontaneous
  Country: US (occurrence: US)
  Receive Date: 20150505
  Receipt Date: 20150505
  Transmission Date: 20150821
  Serious: No
  Sender: FDA-Public Use
  Company Number: US-AMGEN-USASP2015041878

PATIENT
  Age: 80 Year
  Sex: Female

DRUGS (9)
  1. ASA [Concomitant]
     Active Substance: ASPIRIN
  2. ATENOLOL. [Concomitant]
     Active Substance: ATENOLOL
  3. VERAPAMIL [Concomitant]
     Active Substance: VERAPAMIL HYDROCHLORIDE
  4. WELLBUTRIN [Concomitant]
     Active Substance: BUPROPION HYDROCHLORIDE
  5. NEXIUM [Concomitant]
     Active Substance: ESOMEPRAZOLE MAGNESIUM
  6. PAXIL [Concomitant]
     Active Substance: PAROXETINE HYDROCHLORIDE
  7. VITAMIN D [Concomitant]
     Active Substance: CHOLECALCIFEROL
  8. CALCIUM [Concomitant]
     Active Substance: CALCIUM
  9. ENBREL [Suspect]
     Active Substance: ETANERCEPT
     Indication: RHEUMATOID ARTHRITIS
     Dosage: 50 MG, QWK
     Route: 058
     Dates: start: 2009

REACTIONS (5)
  - Injection site swelling [Unknown]
  - Injection site pruritus [Unknown]
  - Increased tendency to bruise [Unknown]
  - Headache [Unknown]
  - Injection site reaction [Unknown]
